FAERS Safety Report 19887295 (Version 1)
Quarter: 2021Q3

REPORT INFORMATION
  Report Type: Spontaneous
  Country: CN (occurrence: CN)
  Receive Date: 20210928
  Receipt Date: 20210928
  Transmission Date: 20211014
  Serious: Yes (Other)
  Sender: FDA-Public Use
  Company Number: CN-ROCHE-2918135

PATIENT
  Age: 37 Year
  Sex: Female

DRUGS (9)
  1. FENTANYL. [Concomitant]
     Active Substance: FENTANYL
     Indication: BREAST CANCER METASTATIC
     Dates: start: 2021
  2. DOCETAXEL. [Concomitant]
     Active Substance: DOCETAXEL
     Indication: BREAST CANCER METASTATIC
     Dosage: FOR 13 CYCLES
     Dates: start: 20200222, end: 20201107
  3. PYROTINIB [Concomitant]
     Active Substance: PYROTINIB
     Indication: BREAST CANCER METASTATIC
     Dates: start: 20210317, end: 202108
  4. PERTUZUMAB. [Suspect]
     Active Substance: PERTUZUMAB
     Indication: BREAST CANCER METASTATIC
     Dosage: FOR 5 CYCLES
     Route: 065
     Dates: start: 20201129
  5. CAPECITABINE. [Concomitant]
     Active Substance: CAPECITABINE
     Indication: BREAST CANCER METASTATIC
     Dosage: FOR 13 CYCLES
     Route: 048
     Dates: start: 20200222, end: 20201107
  6. OXYCODONE [Concomitant]
     Active Substance: OXYCODONE
     Indication: BREAST CANCER METASTATIC
     Route: 048
     Dates: start: 2021
  7. VEDOTIN (UNK INGREDIENTS) [Concomitant]
     Indication: BREAST CANCER METASTATIC
     Dates: start: 20210825
  8. TRASTUZUMAB. [Suspect]
     Active Substance: TRASTUZUMAB
     Dosage: FOR 5 CYCLES
     Route: 065
     Dates: start: 20201129
  9. TRASTUZUMAB. [Suspect]
     Active Substance: TRASTUZUMAB
     Indication: BREAST CANCER METASTATIC
     Dosage: FOR 13 CYCLES
     Route: 065
     Dates: start: 20200222, end: 20201107

REACTIONS (6)
  - Paraesthesia [Not Recovered/Not Resolved]
  - Pigmentation disorder [Not Recovered/Not Resolved]
  - Neurotoxicity [Not Recovered/Not Resolved]
  - Myelosuppression [Recovering/Resolving]
  - Skin exfoliation [Not Recovered/Not Resolved]
  - Neuropathy peripheral [Not Recovered/Not Resolved]
